FAERS Safety Report 14162683 (Version 2)
Quarter: 2017Q4

REPORT INFORMATION
  Report Type: Spontaneous
  Country: US (occurrence: US)
  Receive Date: 20171106
  Receipt Date: 20171207
  Transmission Date: 20180321
  Serious: Yes (Hospitalization, Other)
  Sender: FDA-Public Use
  Company Number: US-ENDO PHARMACEUTICALS INC-2017-005819

PATIENT
  Age: 63 Year
  Sex: Male
  Weight: 79.4 kg

DRUGS (3)
  1. XIAFLEX [Suspect]
     Active Substance: COLLAGENASE CLOSTRIDIUM HISTOLYTICUM
     Dosage: 0.58, SECOND CYCLE, FIRST INJECTION, TWICE IN ONE WEEK
     Route: 026
     Dates: start: 201708
  2. XIAFLEX [Suspect]
     Active Substance: COLLAGENASE CLOSTRIDIUM HISTOLYTICUM
     Dosage: 0.58, FIRST CYCLE, TWICE IN 1 WEEK
     Route: 026
     Dates: start: 20170620
  3. XIAFLEX [Suspect]
     Active Substance: COLLAGENASE CLOSTRIDIUM HISTOLYTICUM
     Indication: PEYRONIE^S DISEASE
     Dosage: 0.58, SECOND CYCLE SECOND INJECTION TWICE IN 1 WEEK
     Route: 026
     Dates: start: 20170815

REACTIONS (3)
  - Anaphylactoid reaction [Recovered/Resolved]
  - Inappropriate schedule of drug administration [Recovered/Resolved]
  - Systemic inflammatory response syndrome [Recovered/Resolved]

NARRATIVE: CASE EVENT DATE: 201708
